FAERS Safety Report 10904232 (Version 1)
Quarter: 2015Q1

REPORT INFORMATION
  Report Type: Spontaneous
  Country: US (occurrence: None)
  Receive Date: 20150107
  Receipt Date: 20150107
  Transmission Date: 20150721
  Serious: No
  Sender: FDA-Public Use
  Company Number: 2014TUS010639

PATIENT
  Sex: Female

DRUGS (2)
  1. BYSTOLIC [Concomitant]
     Active Substance: NEBIVOLOL HYDROCHLORIDE
  2. CONTRAVE [Suspect]
     Active Substance: BUPROPION HYDROCHLORIDE\NALTREXONE HYDROCHLORIDE
     Indication: PRODUCT USED FOR UNKNOWN INDICATION
     Route: 048
     Dates: start: 20141026

REACTIONS (7)
  - Vomiting [None]
  - Malaise [None]
  - Blood pressure increased [None]
  - Palpitations [None]
  - Gastroenteritis viral [None]
  - Diarrhoea [None]
  - Retching [None]

NARRATIVE: CASE EVENT DATE: 20141026
